FAERS Safety Report 25761187 (Version 3)
Quarter: 2025Q4

REPORT INFORMATION
  Report Type: Spontaneous
  Country: CA (occurrence: CA)
  Receive Date: 20250904
  Receipt Date: 20251022
  Transmission Date: 20260117
  Serious: Yes (Life-Threatening, Other)
  Sender: SANOFI AVENTIS
  Company Number: CA-SA-2025SA263882

PATIENT
  Age: 68 Year
  Sex: Female
  Weight: 69 kg

DRUGS (17)
  1. ADMELOG [Suspect]
     Active Substance: INSULIN LISPRO
     Indication: Diabetes mellitus
     Dosage: 4 U, PRN
     Route: 065
  2. ADMELOG [Suspect]
     Active Substance: INSULIN LISPRO
     Dosage: 2-4 U, PRN
     Route: 065
  3. APIDRA [Suspect]
     Active Substance: INSULIN GLULISINE
     Indication: Diabetes mellitus
     Dosage: 4 IU, PRN
     Route: 058
  4. APIDRA [Suspect]
     Active Substance: INSULIN GLULISINE
     Dosage: 2-4 IU, PRN
     Route: 058
  5. ASPIRIN [Concomitant]
     Active Substance: ASPIRIN
  6. ACYCLOVIR [Concomitant]
     Active Substance: ACYCLOVIR
     Dosage: 400 MG, BID
  7. CRESTOR [Concomitant]
     Active Substance: ROSUVASTATIN CALCIUM
     Dosage: 1 DF, HS (FOR 100 DAYS)
  8. FUROSEMIDE [Concomitant]
     Active Substance: FUROSEMIDE
     Dosage: (1-1.5 TABLETS 1 TIME DAILY )
  9. LEVOTHYROXINE SODIUM [Concomitant]
     Active Substance: LEVOTHYROXINE SODIUM
     Dosage: 88 UG, QD
  10. LORAZEPAM [Concomitant]
     Active Substance: LORAZEPAM
     Dosage: 1 MG (1 HR BEFORE PROCEDURE)
     Route: 048
  11. MELOXICAM [Concomitant]
     Active Substance: MELOXICAM
     Dosage: 7.5 MG ( 1-2 TABLETS 1 TIME DAILY)
  12. NITROGLYCERIN [Concomitant]
     Active Substance: NITROGLYCERIN
     Dosage: 0.4 MG ( 0.4 MG/SPRAY I SPRAY OTHER Q5 MIN X 2: IF NEED MORE THAN 2 )
  13. OMNARIS [Concomitant]
     Active Substance: CICLESONIDE
     Dosage: 50 UG, QD (2 SPRAYS)
  14. RABEPRAZOLE [Concomitant]
     Active Substance: RABEPRAZOLE
     Dosage: 20 MG, QD(FOR 100 DAYS)
  15. TOUJEO [Concomitant]
     Active Substance: INSULIN GLARGINE
     Dosage: 4 U, HS
     Route: 058
  16. VITAMIN B12 [Concomitant]
     Active Substance: CYANOCOBALAMIN
  17. ASPIRIN [Concomitant]
     Active Substance: ASPIRIN
     Dosage: 81 MG, QD
     Route: 048

REACTIONS (4)
  - Loss of consciousness [Unknown]
  - Blood glucose decreased [Unknown]
  - Diabetes mellitus inadequate control [Unknown]
  - Product substitution issue [Unknown]

NARRATIVE: CASE EVENT DATE: 20230301
